FAERS Safety Report 9443540 (Version 1)
Quarter: 2013Q3

REPORT INFORMATION
  Report Type: Spontaneous
  Country: US (occurrence: US)
  Receive Date: 20130806
  Receipt Date: 20130806
  Transmission Date: 20140515
  Serious: No
  Sender: FDA-Public Use
  Company Number: US-PFIZER INC-2013225606

PATIENT
  Age: 74 Year
  Sex: Male
  Weight: 88.44 kg

DRUGS (3)
  1. CAVERJECT [Suspect]
     Indication: ERECTILE DYSFUNCTION
     Dosage: UNK
     Route: 017
     Dates: start: 1998
  2. CAVERJECT [Suspect]
     Dosage: 10 MG, WEEKLY
     Route: 017
  3. PROTONIX [Concomitant]
     Dosage: 40 MG, UNK

REACTIONS (3)
  - Myalgia [Unknown]
  - Chills [Unknown]
  - Tremor [Unknown]
